FAERS Safety Report 10686906 (Version 2)
Quarter: 2015Q1

REPORT INFORMATION
  Report Type: Spontaneous
  Country: US (occurrence: US)
  Receive Date: 20150102
  Receipt Date: 20150102
  Transmission Date: 20150720
  Serious: Yes (Other)
  Sender: FDA-Public Use
  Company Number: US-ROCHE-1418897

PATIENT
  Age: 63 Year
  Sex: Female
  Weight: 49.49 kg

DRUGS (2)
  1. HERCEPTIN [Suspect]
     Active Substance: TRASTUZUMAB
     Indication: BREAST CANCER METASTATIC
     Route: 042
     Dates: start: 2014
  2. XELODA [Suspect]
     Active Substance: CAPECITABINE
     Indication: BREAST CANCER METASTATIC
     Dosage: 14 DAYS ON, 7 DAYS OFF
     Route: 048
     Dates: start: 201406

REACTIONS (17)
  - Tumour marker increased [Unknown]
  - Gastrointestinal pain [Not Recovered/Not Resolved]
  - Drug dose omission [Unknown]
  - Retinal detachment [Unknown]
  - Weight fluctuation [Unknown]
  - Abdominal pain [Unknown]
  - Skin discolouration [Recovering/Resolving]
  - Liver disorder [Not Recovered/Not Resolved]
  - Skin discolouration [Not Recovered/Not Resolved]
  - Weight decreased [Unknown]
  - Eructation [Unknown]
  - Palmar-plantar erythrodysaesthesia syndrome [Unknown]
  - Aspiration pleural cavity [Unknown]
  - Breast ulceration [Unknown]
  - Skin fissures [Unknown]
  - Back pain [Unknown]
  - Constipation [Recovered/Resolved]
